FAERS Safety Report 6170217-7 (Version None)
Quarter: 2009Q2

REPORT INFORMATION
  Report Type: 
  Country: None (occurrence: None)
  Receive Date: 20090427
  Receipt Date: 20090427
  Transmission Date: 20091009
  Serious: Yes (Hospitalization)
  Sender: FDA-Public Use
  Company Number: None

PATIENT
  Sex: Male

DRUGS (9)
  1. GLEEVEC [Suspect]
     Indication: PROSTATE CANCER
     Dosage: 300 MG QD PO ON HOLD
     Route: 048
     Dates: start: 20090312
  2. SORAFENIB [Suspect]
     Dosage: 400 MG QD PO ON HOLD
     Route: 048
     Dates: start: 20090312
  3. LUPRON [Concomitant]
  4. IPRATROPIUM BROMIDE [Concomitant]
  5. OS-CAL [Concomitant]
  6. VITAMIN E [Concomitant]
  7. MULTI-VITAMINS [Concomitant]
  8. ASPIRIN [Concomitant]
  9. ASCORBIC ACID [Concomitant]

REACTIONS (3)
  - DEHYDRATION [None]
  - PAIN [None]
  - SYNCOPE [None]
